FAERS Safety Report 22208496 (Version 1)
Quarter: 2023Q2

REPORT INFORMATION
  Report Type: Other
  Country: US (occurrence: US)
  Receive Date: 20230413
  Receipt Date: 20230413
  Transmission Date: 20230721
  Serious: No
  Sender: FDA-Public Use
  Company Number: US-TRAVERE-2022TVT00541

PATIENT
  Age: 5 Month
  Sex: Female

DRUGS (1)
  1. CHOLBAM [Suspect]
     Active Substance: CHOLIC ACID
     Indication: Liver disorder
     Dosage: 50 MG, AS DIRECTED.
     Route: 048
     Dates: start: 20220903

REACTIONS (1)
  - Vomiting [Unknown]
